FAERS Safety Report 18517383 (Version 2)
Quarter: 2022Q3

REPORT INFORMATION
  Report Type: Report from Study
  Country: US (occurrence: US)
  Receive Date: 20201118
  Receipt Date: 20220926
  Transmission Date: 20221027
  Serious: Yes (Hospitalization)
  Sender: FDA-Public Use
  Company Number: US-SHIRE-US202020276

PATIENT
  Sex: Male

DRUGS (1)
  1. HUMAN IMMUNOGLOBULIN G\HYALURONIDASE RECOMBINANT HUMAN [Suspect]
     Active Substance: HUMAN IMMUNOGLOBULIN G\HYALURONIDASE RECOMBINANT HUMAN
     Indication: Primary immunodeficiency syndrome
     Dosage: 60 GRAM
     Route: 065

REACTIONS (7)
  - Bronchitis [Unknown]
  - Arthritis [Unknown]
  - Fatigue [Unknown]
  - Grief reaction [Unknown]
  - Thinking abnormal [Unknown]
  - Nail growth abnormal [Unknown]
  - Hair growth abnormal [Unknown]
